FAERS Safety Report 7880518-X (Version None)
Quarter: 2011Q4

REPORT INFORMATION
  Report Type: 
  Country: None (occurrence: None)
  Receive Date: 20111101
  Receipt Date: 20111028
  Transmission Date: 20120403
  Serious: Yes (Death)
  Sender: FDA-Public Use
  Company Number: PHHY2011CO40820

PATIENT
  Age: 82 Year
  Sex: Female

DRUGS (4)
  1. ASPIRIN [Concomitant]
  2. GALVUS MET [Suspect]
     Indication: TYPE 2 DIABETES MELLITUS
     Dosage: 1000 MG METFORMIN + 50 MG VILDAGLIPTIN
     Route: 048
  3. EXFORGE [Suspect]
     Indication: HYPERTENSION
     Dosage: 160 MG VALSARTAN + 5 MG AMLODIPINE
  4. CRESTOR [Concomitant]

REACTIONS (2)
  - GLYCOSYLATED HAEMOGLOBIN INCREASED [None]
  - ACUTE MYOCARDIAL INFARCTION [None]
